FAERS Safety Report 8153011-7 (Version None)
Quarter: 2012Q1

REPORT INFORMATION
  Report Type: 
  Country: None (occurrence: None)
  Receive Date: 20120103
  Receipt Date: 20111029
  Transmission Date: 20120608
  Serious: No
  Sender: FDA-Public Use
  Company Number: AE-2011-002853

PATIENT
  Age: 52 Year
  Sex: Female
  Weight: 83.9154 kg

DRUGS (8)
  1. RIBAVIRIN [Concomitant]
  2. ZOLOFT [Concomitant]
  3. METFORMIN HCL [Concomitant]
  4. VALTREX [Concomitant]
  5. PEGASYS [Concomitant]
  6. METOPROLOL TARTRATE [Concomitant]
  7. INCIVEK [Suspect]
     Dosage: 2250 MG (750 MG,1 IN 8 HR),ORAL
     Route: 048
     Dates: start: 20110902
  8. LEVOTHYROXINE SODIUM [Concomitant]

REACTIONS (2)
  - PRURITUS [None]
  - RASH [None]
